FAERS Safety Report 4881823-1 (Version None)
Quarter: 2006Q1

REPORT INFORMATION
  Report Type: 
  Country: None (occurrence: None)
  Receive Date: 20060117
  Receipt Date: 20060104
  Transmission Date: 20060701
  Serious: Yes (Other)
  Sender: FDA-Public Use
  Company Number: CH-AMGEN-UK163657

PATIENT
  Age: 29 Year
  Sex: Female

DRUGS (12)
  1. MIMPARA [Suspect]
     Indication: PRE-EXISTING DISEASE
     Route: 048
  2. ATORVASTATIN [Suspect]
     Route: 048
  3. APROVEL [Suspect]
     Route: 048
  4. LASIX [Suspect]
     Route: 048
  5. MIGRALEVE [Suspect]
     Route: 048
  6. NEXIUM [Concomitant]
     Route: 048
  7. BELOC [Concomitant]
     Route: 048
  8. ASPIRIN [Concomitant]
     Route: 048
  9. ROCALTROL [Concomitant]
     Route: 048
  10. RENAGEL [Concomitant]
     Route: 048
  11. CALCIUM ACETATE [Concomitant]
     Route: 048
  12. VITAMIN B COMPLEX WITH C [Concomitant]
     Route: 048

REACTIONS (4)
  - ABORTION [None]
  - ABORTION INDUCED [None]
  - DRUG EXPOSURE DURING PREGNANCY [None]
  - PREGNANCY [None]
